FAERS Safety Report 24166450 (Version 1)
Quarter: 2024Q3

REPORT INFORMATION
  Report Type: Spontaneous
  Country: GB (occurrence: GB)
  Receive Date: 20240802
  Receipt Date: 20240802
  Transmission Date: 20241016
  Serious: Yes (Other)
  Sender: MYLAN
  Company Number: GB-MYLANLABS-2024M1069653

PATIENT

DRUGS (2)
  1. ZOLEDRONIC ACID [Suspect]
     Active Substance: ZOLEDRONIC ACID
     Indication: Aneurysmal bone cyst
     Dosage: UNK, EVERY 6 MONTHS
     Route: 065
  2. DENOSUMAB [Concomitant]
     Active Substance: DENOSUMAB
     Indication: Aneurysmal bone cyst
     Dosage: 60 MILLIGRAM, MONTHLY (INFUSION)
     Route: 065

REACTIONS (1)
  - Product dose omission issue [Unknown]
